FAERS Safety Report 9789769 (Version 1)
Quarter: 2013Q4

REPORT INFORMATION
  Report Type: Spontaneous
  Country: US (occurrence: US)
  Receive Date: 20131231
  Receipt Date: 20131231
  Transmission Date: 20140711
  Serious: No
  Sender: FDA-Public Use
  Company Number: US-B.I. PHARMACEUTICALS,INC./RIDGEFIELD-2013-BI-42956BP

PATIENT
  Age: 61 Year
  Sex: Female
  Weight: 58 kg

DRUGS (1)
  1. FLOMAX CAPSULES [Suspect]
     Route: 048
     Dates: start: 20131216, end: 20131216

REACTIONS (9)
  - Medication error [Recovered/Resolved]
  - Chromaturia [Not Recovered/Not Resolved]
  - Sinus disorder [Not Recovered/Not Resolved]
  - Glassy eyes [Not Recovered/Not Resolved]
  - Acne [Recovered/Resolved]
  - Sensitivity of teeth [Not Recovered/Not Resolved]
  - Hot flush [Not Recovered/Not Resolved]
  - Chills [Not Recovered/Not Resolved]
  - Back pain [Not Recovered/Not Resolved]
